FAERS Safety Report 7493992-8 (Version None)
Quarter: 2011Q2

REPORT INFORMATION
  Report Type: 
  Country: None (occurrence: None)
  Receive Date: 20110519
  Receipt Date: 20110519
  Transmission Date: 20111010
  Serious: No
  Sender: FDA-Public Use
  Company Number: None

PATIENT
  Age: 76 Year
  Sex: Male

DRUGS (1)
  1. COSOPT [Suspect]

REACTIONS (4)
  - PRODUCT DROPPER ISSUE [None]
  - ECONOMIC PROBLEM [None]
  - LIQUID PRODUCT PHYSICAL ISSUE [None]
  - PRODUCT PACKAGING QUANTITY ISSUE [None]
